FAERS Safety Report 6546504-7 (Version None)
Quarter: 2010Q1

REPORT INFORMATION
  Report Type: 
  Country: None (occurrence: None)
  Receive Date: 20100122
  Receipt Date: 20100113
  Transmission Date: 20100710
  Serious: Yes (Death, Other)
  Sender: FDA-Public Use
  Company Number: IN-ROXANE LABORATORIES, INC.-2010-RO-00015RO

PATIENT
  Age: 10 Year
  Sex: Female

DRUGS (8)
  1. METHOTREXATE [Suspect]
     Indication: LEUKAEMIA RECURRENT
  2. DEXAMETHASONE [Suspect]
     Indication: LEUKAEMIA RECURRENT
  3. VINCRISTINE [Suspect]
     Indication: LEUKAEMIA RECURRENT
  4. ELSPAR [Suspect]
     Indication: LEUKAEMIA RECURRENT
  5. CEFTRIAXONE [Suspect]
     Indication: ANTIBIOTIC PROPHYLAXIS
  6. AMIKACIN [Suspect]
     Indication: ANTIBIOTIC PROPHYLAXIS
  7. VANCOMYCIN [Suspect]
     Indication: SINUSITIS
  8. AMBISOME [Suspect]

REACTIONS (5)
  - CELLULITIS [None]
  - FATIGUE [None]
  - MENTAL STATUS CHANGES [None]
  - STRIDOR [None]
  - ZYGOMYCOSIS [None]
